FAERS Safety Report 20930211 (Version 1)
Quarter: 2022Q2

REPORT INFORMATION
  Report Type: Spontaneous
  Country: IE (occurrence: IE)
  Receive Date: 20220608
  Receipt Date: 20220608
  Transmission Date: 20220721
  Serious: Yes (Other)
  Sender: FDA-Public Use
  Company Number: IE-ORGANON-O2204IRL001080

PATIENT
  Age: 68 Year
  Sex: Female

DRUGS (3)
  1. ALENDRONATE SODIUM [Suspect]
     Active Substance: ALENDRONATE SODIUM
     Dosage: 70MG, ONCE DAILY
     Route: 050
  2. SIMPONI [Suspect]
     Active Substance: GOLIMUMAB
     Indication: Colitis ulcerative
     Dosage: 100MG, AS PER PRESCRIPTION
     Route: 058
     Dates: start: 20190117
  3. CALTRATE [Suspect]
     Active Substance: CALCIUM CARBONATE
     Dosage: 1200MG, ONCE DAILY
     Route: 050

REACTIONS (1)
  - Adverse event [Recovered/Resolved]
